FAERS Safety Report 10037818 (Version 2)
Quarter: 2014Q2

REPORT INFORMATION
  Report Type: Spontaneous
  Country: FR (occurrence: FR)
  Receive Date: 20140326
  Receipt Date: 20140527
  Transmission Date: 20141212
  Serious: Yes (Hospitalization, Other)
  Sender: FDA-Public Use
  Company Number: FR-SA-2014SA037099

PATIENT
  Age: 47 Year
  Sex: Male
  Weight: 92 kg

DRUGS (6)
  1. FABRAZYME [Suspect]
     Indication: FABRY^S DISEASE
     Route: 042
     Dates: start: 20110914
  2. SOTALEX [Concomitant]
     Indication: CARDIAC FAILURE
  3. COZAAR [Concomitant]
     Indication: HYPERTENSION
  4. MIMPARA [Concomitant]
     Indication: HYPERPARATHYROIDISM SECONDARY
  5. LASILIX [Concomitant]
     Indication: HYPERTENSION
  6. COUMADINE [Concomitant]
     Indication: ARRHYTHMIA

REACTIONS (4)
  - Cardiac infection [Recovered/Resolved]
  - Cardiac failure [Recovered/Resolved]
  - Pulmonary oedema [Unknown]
  - Arrhythmia [Unknown]
